FAERS Safety Report 5651423-4 (Version None)
Quarter: 2008Q1

REPORT INFORMATION
  Report Type: 
  Country: None (occurrence: None)
  Receive Date: 20080305
  Receipt Date: 20080226
  Transmission Date: 20080703
  Serious: Yes (Hospitalization)
  Sender: FDA-Public Use
  Company Number: AT-BRISTOL-MYERS SQUIBB COMPANY-13678339

PATIENT
  Age: 70 Year

DRUGS (4)
  1. CETUXIMAB [Suspect]
     Indication: COLON CANCER STAGE III
     Route: 042
     Dates: start: 20060824, end: 20070125
  2. OXALIPLATIN [Suspect]
     Indication: COLON CANCER STAGE III
     Route: 042
     Dates: start: 20060824, end: 20070125
  3. FLUOROURACIL [Suspect]
     Indication: COLON CANCER STAGE III
     Route: 042
     Dates: start: 20060824, end: 20070125
  4. FOLINIC ACID [Suspect]
     Indication: COLON CANCER STAGE III
     Route: 042
     Dates: start: 20060824, end: 20070125

REACTIONS (7)
  - HAEMOGLOBIN DECREASED [None]
  - NEUTROPENIA [None]
  - PROTEIN TOTAL INCREASED [None]
  - PYELONEPHRITIS [None]
  - RENAL ABSCESS [None]
  - URINARY TRACT INFECTION [None]
  - WHITE BLOOD CELL COUNT DECREASED [None]
